FAERS Safety Report 21874079 (Version 1)
Quarter: 2023Q1

REPORT INFORMATION
  Report Type: Spontaneous
  Country: RO (occurrence: RO)
  Receive Date: 20230117
  Receipt Date: 20230117
  Transmission Date: 20230417
  Serious: Yes (Other)
  Sender: FDA-Public Use
  Company Number: RO-FreseniusKabi-FK202217194

PATIENT
  Age: 34 Year
  Sex: Male

DRUGS (3)
  1. DEXAMETHASONE [Suspect]
     Active Substance: DEXAMETHASONE
     Indication: Plasma cell myeloma
     Dosage: (VCD) CHEMOTHERAPY PROTOCOL FOR UP TO 8 CYCLES, EVERY 21DAYS
     Route: 065
  2. BORTEZOMIB [Suspect]
     Active Substance: BORTEZOMIB
     Indication: Plasma cell myeloma
     Dosage: (VCD) CHEMOTHERAPY PROTOCOL FOR UP TO 8 CYCLES, EVERY 21DAYS
     Route: 065
  3. CYCLOPHOSPHAMIDE [Suspect]
     Active Substance: CYCLOPHOSPHAMIDE
     Indication: Plasma cell myeloma
     Dosage: (VCD) CHEMOTHERAPY PROTOCOL FOR UP TO 8 CYCLES, EVERY 21DAYS
     Route: 065

REACTIONS (4)
  - Hepatotoxicity [Unknown]
  - Nausea [Recovered/Resolved]
  - Fatigue [Recovered/Resolved]
  - Headache [Recovered/Resolved]
